FAERS Safety Report 7051569-2 (Version None)
Quarter: 2010Q4

REPORT INFORMATION
  Report Type: 
  Country: None (occurrence: None)
  Receive Date: 20101019
  Receipt Date: 20101008
  Transmission Date: 20110411
  Serious: Yes (Hospitalization, Other)
  Sender: FDA-Public Use
  Company Number: JP-ROCHE-636943

PATIENT
  Sex: Female

DRUGS (7)
  1. TOCILIZUMAB [Suspect]
     Indication: RHEUMATOID ARTHRITIS
     Route: 041
     Dates: start: 20090323, end: 20090323
  2. TOCILIZUMAB [Suspect]
     Route: 041
     Dates: start: 20090420, end: 20090420
  3. TOCILIZUMAB [Suspect]
     Route: 041
     Dates: start: 20090525, end: 20090525
  4. PREDNISOLONE [Concomitant]
     Dosage: FORM: ORAL FORMULATION NOS
     Route: 048
  5. MECOBALAMIN [Concomitant]
     Dosage: DRUG: RETICOLAN
     Route: 048
  6. MOBIC [Concomitant]
     Route: 048
  7. VOLTAREN [Concomitant]
     Dosage: FORM: INTERCALATING AGENT.
     Route: 054

REACTIONS (3)
  - ANGINA PECTORIS [None]
  - DERMATITIS ALLERGIC [None]
  - PERICARDITIS RHEUMATIC [None]
